FAERS Safety Report 21054047 (Version 1)
Quarter: 2022Q3

REPORT INFORMATION
  Report Type: Spontaneous
  Country: US (occurrence: US)
  Receive Date: 20220707
  Receipt Date: 20220707
  Transmission Date: 20221027
  Serious: No
  Sender: FDA-Public Use
  Company Number: US-TAKEDA-2022TUS045595

PATIENT
  Sex: Male

DRUGS (2)
  1. DEXILANT [Suspect]
     Active Substance: DEXLANSOPRAZOLE
     Indication: Gastrooesophageal reflux disease
     Dosage: 60 MILLIGRAM, QD
     Route: 065
  2. DEXILANT [Suspect]
     Active Substance: DEXLANSOPRAZOLE
     Indication: Oesophageal disorder

REACTIONS (2)
  - Hyperchlorhydria [Unknown]
  - Incorrect product administration duration [Unknown]
